FAERS Safety Report 9306998 (Version 2)
Quarter: 2013Q3

REPORT INFORMATION
  Report Type: Spontaneous
  Country: US (occurrence: US)
  Receive Date: 20130523
  Receipt Date: 20130701
  Transmission Date: 20140515
  Serious: No
  Sender: FDA-Public Use
  Company Number: US-009507513-1305USA012113

PATIENT
  Sex: Female

DRUGS (2)
  1. TEMODAR [Suspect]
     Indication: GLIOBLASTOMA
     Dosage: 100 MG, UNK
     Route: 048
  2. TEMODAR [Suspect]
     Dosage: 200 MG, UNK
     Route: 048

REACTIONS (4)
  - Pneumonia [Recovering/Resolving]
  - Nausea [Not Recovered/Not Resolved]
  - Vomiting [Not Recovered/Not Resolved]
  - Influenza like illness [Not Recovered/Not Resolved]
